FAERS Safety Report 24343533 (Version 1)
Quarter: 2024Q3

REPORT INFORMATION
  Report Type: Spontaneous
  Country: JP (occurrence: JP)
  Receive Date: 20240920
  Receipt Date: 20240920
  Transmission Date: 20241016
  Serious: Yes (Other)
  Sender: PFIZER
  Company Number: JP-PFIZER INC-202400258450

PATIENT
  Sex: Male

DRUGS (1)
  1. LORAZEPAM [Suspect]
     Active Substance: LORAZEPAM
     Indication: Sleep disorder
     Dosage: IN THE MORNING, NOON AND NIGHT AFTER MEALS
     Route: 048

REACTIONS (6)
  - Cataract [Unknown]
  - Insomnia [Unknown]
  - Poor quality sleep [Unknown]
  - Nausea [Unknown]
  - Renal function test abnormal [Unknown]
  - Product use in unapproved indication [Unknown]
